FAERS Safety Report 16184542 (Version 1)
Quarter: 2019Q2

REPORT INFORMATION
  Report Type: Spontaneous
  Country: US (occurrence: US)
  Receive Date: 20190410
  Receipt Date: 20190410
  Transmission Date: 20190711
  Serious: Yes (Hospitalization)
  Sender: FDA-Public Use
  Company Number: None

PATIENT
  Age: 62 Year
  Sex: Male

DRUGS (3)
  1. RAMIPRIL, ATORVASTATIN, NOVOLOG, ALPRAZOLAM [Concomitant]
  2. DOK [Concomitant]
     Active Substance: DOCUSATE SODIUM
  3. HUMIRA [Suspect]
     Active Substance: ADALIMUMAB
     Indication: PSORIASIS
     Dosage: ?          OTHER FREQUENCY:EVERY OTHER WEEK;?
     Route: 058
     Dates: start: 20170706

REACTIONS (2)
  - Therapy cessation [None]
  - Prostatic operation [None]

NARRATIVE: CASE EVENT DATE: 20190319
